FAERS Safety Report 5127553-2 (Version None)
Quarter: 2006Q4

REPORT INFORMATION
  Report Type: 
  Country: None (occurrence: None)
  Receive Date: 20061016
  Receipt Date: 20061002
  Transmission Date: 20070319
  Serious: Yes (Death, Other)
  Sender: FDA-Public Use
  Company Number: US-JNJFOC-20061000813

PATIENT
  Sex: Female
  Weight: 97.52 kg

DRUGS (13)
  1. REMICADE [Suspect]
     Indication: RHEUMATOID ARTHRITIS
  2. PLAQUENIL [Concomitant]
  3. METHOTREXATE [Concomitant]
  4. AZULFIDINE [Concomitant]
  5. METHOTREXATE [Concomitant]
  6. VIOXX [Concomitant]
  7. SALSALATE [Concomitant]
  8. PRILOSEC [Concomitant]
  9. ZANTAC [Concomitant]
  10. TYLENOL [Concomitant]
  11. TYLENOL W/ CODEINE [Concomitant]
  12. TRAMADOL HCL [Concomitant]
  13. GOLD [Concomitant]

REACTIONS (2)
  - DIFFUSE LARGE B-CELL LYMPHOMA [None]
  - MESENTERIC VASCULAR INSUFFICIENCY [None]
